FAERS Safety Report 5894019-1 (Version None)
Quarter: 2008Q3

REPORT INFORMATION
  Report Type: 
  Country: None (occurrence: None)
  Receive Date: 20080923
  Receipt Date: 20080922
  Transmission Date: 20090109
  Serious: Yes (Death)
  Sender: FDA-Public Use
  Company Number: JP-B.I. PHARMACEUTICALS,INC./RIDGEFIELD-2008-BP-04765NB

PATIENT
  Sex: Male
  Weight: 56 kg

DRUGS (7)
  1. MICARDIS [Suspect]
     Indication: HYPERTENSION
     Dosage: 40MG
     Route: 048
     Dates: start: 20060818, end: 20070417
  2. YATORIP [Concomitant]
     Indication: HYPERLIPIDAEMIA
     Dosage: 600MG
     Route: 048
     Dates: start: 20070116
  3. CALBLOCK [Concomitant]
     Indication: HYPERTENSION
     Dosage: 16MG
     Route: 048
     Dates: start: 20050705
  4. KAZMARIN [Concomitant]
     Indication: HYPERTENSION
     Dosage: 1MG
     Route: 048
     Dates: start: 20060721
  5. BASSAMIN 81MG [Concomitant]
     Dosage: 81MG
     Route: 048
     Dates: start: 20051111
  6. KENTAN [Concomitant]
     Indication: INTERVERTEBRAL DISC DISORDER
     Dosage: 180MG
     Route: 048
     Dates: start: 20050705
  7. MUCOSTA [Concomitant]
     Indication: GASTRITIS
     Dosage: 200MG
     Route: 048
     Dates: start: 20051027

REACTIONS (2)
  - ARTERIOSCLEROSIS OBLITERANS [None]
  - DEATH [None]
